FAERS Safety Report 4959892-X (Version None)
Quarter: 2006Q1

REPORT INFORMATION
  Report Type: 
  Country: None (occurrence: None)
  Receive Date: 20060324
  Receipt Date: 20060323
  Transmission Date: 20060701
  Serious: Yes (Hospitalization, Other)
  Sender: FDA-Public Use
  Company Number: HQWYE481323MAR06

PATIENT
  Age: 7 Year
  Sex: Female

DRUGS (1)
  1. CEFIXIME CHEWABLE [Suspect]
     Indication: OTITIS MEDIA
     Dosage: 400 MG DAILY ORAL
     Route: 048
     Dates: start: 19991025, end: 19991105

REACTIONS (1)
  - HENOCH-SCHONLEIN PURPURA [None]
